FAERS Safety Report 18384721 (Version 1)
Quarter: 2020Q4

REPORT INFORMATION
  Report Type: Spontaneous
  Country: GR (occurrence: GR)
  Receive Date: 20201015
  Receipt Date: 20201015
  Transmission Date: 20210114
  Serious: Yes (Hospitalization)
  Sender: FDA-Public Use
  Company Number: NVSC2020GR272420

PATIENT
  Age: 54 Year
  Sex: Male
  Weight: 95 kg

DRUGS (5)
  1. 5 FU [Suspect]
     Active Substance: FLUOROURACIL
     Dosage: 800 MG
     Route: 040
     Dates: start: 20191120
  2. ERBITUX [Suspect]
     Active Substance: CETUXIMAB
     Indication: COLORECTAL CANCER
     Route: 065
     Dates: start: 20191120
  3. FOLINIC ACID [Suspect]
     Active Substance: LEUCOVORIN
     Indication: COLORECTAL CANCER
     Dosage: 175 MG
     Route: 065
     Dates: start: 20191120
  4. OXALIPLATIN. [Suspect]
     Active Substance: OXALIPLATIN
     Indication: COLORECTAL CANCER
     Dosage: 170 MG
     Route: 065
     Dates: start: 20191120
  5. 5 FU [Suspect]
     Active Substance: FLUOROURACIL
     Indication: COLORECTAL CANCER
     Dosage: 2400 MG/M2
     Route: 042
     Dates: start: 20191120

REACTIONS (1)
  - Diverticulitis [Recovered/Resolved with Sequelae]

NARRATIVE: CASE EVENT DATE: 20200119
